FAERS Safety Report 7682376-5 (Version None)
Quarter: 2011Q3

REPORT INFORMATION
  Report Type: 
  Country: None (occurrence: None)
  Receive Date: 20110810
  Receipt Date: 20110726
  Transmission Date: 20111222
  Serious: Yes (Other)
  Sender: FDA-Public Use
  Company Number: 2011MA009445

PATIENT
  Age: 70 Year
  Sex: Female

DRUGS (3)
  1. CITALOPRAM HYDROBROMIDE [Suspect]
     Indication: INSOMNIA
     Dosage: 40 MG;PO
     Route: 048
     Dates: start: 20110401
  2. ENALAPRIL MALEATE [Concomitant]
  3. METOPROLOL SUCCINATE [Concomitant]

REACTIONS (4)
  - DRUG INEFFECTIVE [None]
  - PSYCHOMOTOR HYPERACTIVITY [None]
  - MANIA [None]
  - INSOMNIA [None]
